FAERS Safety Report 5574592-3 (Version None)
Quarter: 2007Q4

REPORT INFORMATION
  Report Type: 
  Country: None (occurrence: None)
  Receive Date: 20071227
  Receipt Date: 20071226
  Transmission Date: 20080405
  Serious: Yes (Other)
  Sender: FDA-Public Use
  Company Number: ES-BRISTOL-MYERS SQUIBB COMPANY-14017024

PATIENT
  Age: 56 Year
  Sex: Female

DRUGS (5)
  1. HYDROXYCARBAMIDE [Suspect]
  2. ISONIAZID [Suspect]
  3. ETHAMBUTOL HYDROCHLORIDE [Suspect]
  4. LOSARTAN POTASSIUM [Suspect]
  5. SPIRONOLACTONE [Suspect]

REACTIONS (1)
  - PHOTOSENSITIVITY REACTION [None]
